FAERS Safety Report 24246307 (Version 1)
Quarter: 2024Q3

REPORT INFORMATION
  Report Type: Spontaneous
  Country: IL (occurrence: IL)
  Receive Date: 20240825
  Receipt Date: 20240825
  Transmission Date: 20241017
  Serious: Yes (Disabling, Other)
  Sender: MERCK KGAA
  Company Number: IL-Merck Healthcare KGaA-2024043742

PATIENT
  Age: 53 Year
  Sex: Female

DRUGS (3)
  1. EUTHYROX [Suspect]
     Active Substance: LEVOTHYROXINE SODIUM
     Indication: Product used for unknown indication
     Dates: start: 20240430
  2. EUTHYROX [Suspect]
     Active Substance: LEVOTHYROXINE SODIUM
     Indication: Product used for unknown indication
     Dosage: DOSAGE : 150
     Dates: start: 20240430
  3. LEVOTHYROXINE [Concomitant]
     Active Substance: LEVOTHYROXINE\LEVOTHYROXINE SODIUM
     Indication: Product used for unknown indication

REACTIONS (6)
  - Asthenia [Unknown]
  - Fatigue [Unknown]
  - Gallbladder disorder [Unknown]
  - Pain [Unknown]
  - Diarrhoea [Unknown]
  - Vomiting [Unknown]
